FAERS Safety Report 12271095 (Version 1)
Quarter: 2016Q2

REPORT INFORMATION
  Report Type: Spontaneous
  Country: US (occurrence: None)
  Receive Date: 20160414
  Receipt Date: 20160414
  Transmission Date: 20160815
  Serious: Yes (Hospitalization)
  Sender: FDA-Public Use
  Company Number: None

PATIENT
  Age: 47 Year
  Sex: Female
  Weight: 128 kg

DRUGS (20)
  1. COREG [Concomitant]
     Active Substance: CARVEDILOL
  2. WARFARIN, 6MG AND 7.5MG [Suspect]
     Active Substance: WARFARIN
     Indication: ATRIAL FIBRILLATION
     Route: 048
  3. CELEXA [Concomitant]
     Active Substance: CITALOPRAM HYDROBROMIDE
  4. ALBUTEROL (PROVENTIL) [Concomitant]
  5. TRAZODONE (DESYREL) [Concomitant]
  6. COUMADIN [Concomitant]
     Active Substance: WARFARIN SODIUM
  7. SINGULAIR [Concomitant]
     Active Substance: MONTELUKAST SODIUM
  8. GABAPENTIN (NEURONTIN) [Concomitant]
  9. CRESTOR [Concomitant]
     Active Substance: ROSUVASTATIN CALCIUM
  10. FERROUS SULFATE. [Concomitant]
     Active Substance: FERROUS SULFATE
  11. POTASSIUM CHLORIDE SA (K-DUR;CKOR-CON M) [Concomitant]
  12. CETIRIZINE (ZYRTEC ALLERGY) [Concomitant]
  13. ATROVENT HFA [Concomitant]
     Active Substance: IPRATROPIUM BROMIDE
  14. METOLAZONE (ZAROXOLYN) [Concomitant]
  15. FLONASE [Concomitant]
     Active Substance: FLUTICASONE PROPIONATE
  16. ADVAIR DISKUS [Concomitant]
     Active Substance: FLUTICASONE PROPIONATE\SALMETEROL XINAFOATE
  17. SPIRIVA [Concomitant]
     Active Substance: TIOTROPIUM BROMIDE MONOHYDRATE
  18. LIDOCAINE-PRILOCAINE (EMLA) [Concomitant]
  19. SPIRONOLACTONE (ALDACTONE) [Concomitant]
  20. NEXIUM [Concomitant]
     Active Substance: ESOMEPRAZOLE MAGNESIUM

REACTIONS (8)
  - International normalised ratio increased [None]
  - Fatigue [None]
  - Haemoglobin decreased [None]
  - Headache [None]
  - Gastritis [None]
  - Asthenia [None]
  - Epistaxis [None]
  - Diverticulum [None]

NARRATIVE: CASE EVENT DATE: 20160213
